FAERS Safety Report 20786537 (Version 1)
Quarter: 2022Q2

REPORT INFORMATION
  Report Type: Spontaneous
  Country: JP (occurrence: JP)
  Receive Date: 20220505
  Receipt Date: 20220505
  Transmission Date: 20220721
  Serious: Yes (Other)
  Sender: FDA-Public Use
  Company Number: JP-SAKK-01079457

PATIENT
  Sex: Male

DRUGS (2)
  1. AMARYL [Suspect]
     Active Substance: GLIMEPIRIDE
     Indication: Type 2 diabetes mellitus
     Dosage: 1 MG
     Route: 065
  2. AMARYL [Suspect]
     Active Substance: GLIMEPIRIDE
     Dosage: 6 MG
     Route: 065

REACTIONS (4)
  - Depressed level of consciousness [Unknown]
  - Vomiting [Unknown]
  - Dizziness postural [Unknown]
  - Fall [Unknown]

NARRATIVE: CASE EVENT DATE: 20060427
